FAERS Safety Report 5248608-8 (Version None)
Quarter: 2007Q1

REPORT INFORMATION
  Report Type: 
  Country: None (occurrence: None)
  Receive Date: 20070223
  Receipt Date: 20070216
  Transmission Date: 20070707
  Serious: Yes (Death)
  Sender: FDA-Public Use
  Company Number: 2006SP008066

PATIENT
  Age: 69 Year
  Sex: Male
  Weight: 78 kg

DRUGS (5)
  1. TEMOZOLOMIDE (S-P) (TEMOZOLOMIDE) [Suspect]
     Indication: ANAPLASTIC ASTROCYTOMA
     Dosage: 400 MG;QD
     Dates: start: 20060719, end: 20061015
  2. TEMOZOLOMIDE (S-P) (TEMOZOLOMIDE) [Suspect]
     Indication: GLIOBLASTOMA
     Dosage: 400 MG;QD
     Dates: start: 20060719, end: 20061015
  3. RADIOTHERAPY (CON.) [Concomitant]
  4. FRISIUM (CON.) [Concomitant]
  5. NEURONTIN (CON.) [Concomitant]

REACTIONS (3)
  - ANAPLASTIC ASTROCYTOMA [None]
  - GLIOBLASTOMA [None]
  - MALIGNANT NEOPLASM PROGRESSION [None]
